FAERS Safety Report 5078205-9 (Version None)
Quarter: 2006Q3

REPORT INFORMATION
  Report Type: 
  Country: None (occurrence: None)
  Receive Date: 20060725
  Receipt Date: 20050527
  Transmission Date: 20061208
  Serious: Yes (Other)
  Sender: FDA-Public Use
  Company Number: 05-000404

PATIENT
  Sex: Female

DRUGS (3)
  1. FEMHRT [Suspect]
     Indication: MENOPAUSAL SYMPTOMS
     Dosage: 5/1000UG, ORAL
     Route: 048
     Dates: start: 20000312, end: 20020823
  2. PROVERA [Suspect]
     Indication: VAGINAL HAEMORRHAGE
     Dosage: ORAL
     Route: 048
     Dates: start: 19981101, end: 19981101
  3. PREMPRO [Suspect]
     Indication: MENOPAUSAL SYMPTOMS
     Dosage: ORAL
     Route: 048
     Dates: start: 19990127, end: 20000311

REACTIONS (1)
  - BREAST CANCER [None]
